FAERS Safety Report 25421324 (Version 1)
Quarter: 2025Q2

REPORT INFORMATION
  Report Type: Spontaneous
  Country: IT (occurrence: IT)
  Receive Date: 20250611
  Receipt Date: 20250611
  Transmission Date: 20250716
  Serious: Yes (Hospitalization, Other)
  Sender: CHEPLAPHARM
  Company Number: None

PATIENT
  Age: 86 Year
  Sex: Female
  Weight: 73 kg

DRUGS (7)
  1. CAPECITABINE [Suspect]
     Active Substance: CAPECITABINE
     Indication: Anal squamous cell carcinoma
     Route: 048
     Dates: start: 20250514
  2. MITOMYCIN [Suspect]
     Active Substance: MITOMYCIN
     Indication: Anal squamous cell carcinoma
     Route: 042
     Dates: start: 20250513, end: 20250513
  3. LEVOTHYROXINE [Concomitant]
     Active Substance: LEVOTHYROXINE
     Indication: Hypothyroidism
     Dosage: 50 MCG AT 07.00?DAILY DOSE: 50 MICROGRAM
     Route: 048
  4. PREDNISONE [Concomitant]
     Active Substance: PREDNISONE
     Dosage: 25 MG AT 08.00?DAILY DOSE: 50 MILLIGRAM
     Route: 048
  5. METFORMIN [Concomitant]
     Active Substance: METFORMIN HYDROCHLORIDE
     Dosage: 500 MG X 2/DAY BREAKFAST AND DINNER.?DAILY DOSE: 1000 MILLIGRAM
     Route: 048
  6. EMPAGLIFLOZIN [Concomitant]
     Active Substance: EMPAGLIFLOZIN
     Dosage: 10 MG AT 08.00?DAILY DOSE: 10 MILLIGRAM
     Route: 048
  7. LOSARTAN [Concomitant]
     Active Substance: LOSARTAN
     Dosage: 50 MG AT 08.00?DAILY DOSE: 50 MILLIGRAM
     Route: 048

REACTIONS (3)
  - Dyspnoea [Recovering/Resolving]
  - Laryngeal oedema [Unknown]
  - Off label use [Unknown]

NARRATIVE: CASE EVENT DATE: 20250514
